FAERS Safety Report 7805091-3 (Version None)
Quarter: 2011Q4

REPORT INFORMATION
  Report Type: 
  Country: None (occurrence: None)
  Receive Date: 20111010
  Receipt Date: 20110927
  Transmission Date: 20120403
  Serious: Yes (Other)
  Sender: FDA-Public Use
  Company Number: PHHY2011JP82689

PATIENT
  Sex: Female

DRUGS (1)
  1. CYCLOSPORINE [Suspect]
     Indication: RENAL TRANSPLANT
     Dosage: UNK UKN, UNK

REACTIONS (11)
  - HAEMOLYTIC ANAEMIA [None]
  - ESCHERICHIA INFECTION [None]
  - ANAEMIA [None]
  - URINE ABNORMALITY [None]
  - PYREXIA [None]
  - BLOOD BILIRUBIN INCREASED [None]
  - PYELONEPHRITIS [None]
  - NEUTROPHIL FUNCTION DISORDER [None]
  - URETERIC STENOSIS [None]
  - BLOOD LACTATE DEHYDROGENASE INCREASED [None]
  - NEPHROPATHY TOXIC [None]
